FAERS Safety Report 5082148-4 (Version None)
Quarter: 2006Q3

REPORT INFORMATION
  Report Type: 
  Country: None (occurrence: None)
  Receive Date: 20060720
  Receipt Date: 20060426
  Transmission Date: 20061208
  Serious: Yes (Hospitalization, Other)
  Sender: FDA-Public Use
  Company Number: 2006057651

PATIENT
  Age: 42 Year
  Sex: Male
  Weight: 147.419 kg

DRUGS (5)
  1. CELEBREX [Suspect]
     Indication: ARTHRITIS
     Dosage: 200 MG (100 MG,2 IN 1 D)
     Dates: start: 19970101
  2. ASPIRIN [Concomitant]
  3. OXYCONTIN [Concomitant]
  4. CODEINE (CODEINE) [Concomitant]
  5. ULTRAM [Concomitant]

REACTIONS (2)
  - ARTERIAL OCCLUSIVE DISEASE [None]
  - MYOCARDIAL INFARCTION [None]
